FAERS Safety Report 12075185 (Version 1)
Quarter: 2016Q1

REPORT INFORMATION
  Report Type: Report from Study
  Country: JP (occurrence: JP)
  Receive Date: 20160212
  Receipt Date: 20160212
  Transmission Date: 20160526
  Serious: Yes (Other)
  Sender: FDA-Public Use
  Company Number: JP-PFIZER INC-2016057254

PATIENT
  Age: 52 Year
  Sex: Female
  Weight: 64.2 kg

DRUGS (1)
  1. CRIZOTINIB [Suspect]
     Active Substance: CRIZOTINIB
     Indication: NON-SMALL CELL LUNG CANCER STAGE IV
     Dosage: 500 MG, DAILY
     Route: 048

REACTIONS (2)
  - Neutropenia [Unknown]
  - Leukopenia [Unknown]
